FAERS Safety Report 6530490-X (Version None)
Quarter: 2010Q1

REPORT INFORMATION
  Report Type: 
  Country: None (occurrence: None)
  Receive Date: 20100106
  Receipt Date: 20100106
  Transmission Date: 20100710
  Serious: Yes (Hospitalization)
  Sender: FDA-Public Use
  Company Number: None

PATIENT
  Sex: Female
  Weight: 71.6683 kg

DRUGS (22)
  1. NORDITROPIN NORDIFLEX [Suspect]
     Dosage: 0.25 MG SC QD
     Route: 058
  2. AZATHIOPRINE [Concomitant]
  3. CYCLOBENZAPRIN (FLEXERIL) [Concomitant]
  4. EVOXAC [Concomitant]
  5. FOLIC ACID [Concomitant]
  6. GLYCOLAX [Concomitant]
  7. METANX (B12) [Concomitant]
  8. METFORMIN HCL [Concomitant]
  9. NORDATRIPIN (HUMAN GROWTH HORMONE) [Concomitant]
  10. PROTONIX [Concomitant]
  11. SPIRNOLAC [Concomitant]
  12. SYNTHROID [Concomitant]
  13. TRAMADOL HCL (ULTRAM) [Concomitant]
  14. VITAMIN D [Concomitant]
  15. ADVIL [Concomitant]
  16. ASPIRIN [Concomitant]
  17. CALCIUM [Concomitant]
  18. MAGNESIUM [Concomitant]
  19. LIDODERM [Concomitant]
  20. MIQUIN (MIDRIN) [Concomitant]
  21. PROMETHAZINE [Concomitant]
  22. VOLTAREN [Concomitant]

REACTIONS (3)
  - CONDITION AGGRAVATED [None]
  - IMPAIRED GASTRIC EMPTYING [None]
  - PRODUCT SUBSTITUTION ISSUE [None]
